FAERS Safety Report 19981828 (Version 1)
Quarter: 2021Q4

REPORT INFORMATION
  Report Type: Spontaneous
  Country: US (occurrence: US)
  Receive Date: 20211021
  Receipt Date: 20211021
  Transmission Date: 20220303
  Serious: Yes (Other)
  Sender: FDA-Public Use
  Company Number: US-GLAXOSMITHKLINE-US2021GSK217048

PATIENT
  Sex: Male

DRUGS (6)
  1. ZANTAC [Suspect]
     Active Substance: RANITIDINE HYDROCHLORIDE
     Indication: Dyspepsia
     Dosage: 150 MG, AS NEEDED
     Route: 065
     Dates: start: 199601, end: 201901
  2. ZANTAC [Suspect]
     Active Substance: RANITIDINE HYDROCHLORIDE
     Indication: Dyspepsia
     Dosage: 150 MG, AS NEEDED
     Route: 065
     Dates: start: 199601, end: 201901
  3. RANITIDINE [Suspect]
     Active Substance: RANITIDINE
     Indication: Dyspepsia
     Dosage: 75 MG, AS NEEDED
     Route: 065
     Dates: start: 200301, end: 201801
  4. RANITIDINE [Suspect]
     Active Substance: RANITIDINE
     Dosage: 150 MG, AS NEEDED
     Route: 065
     Dates: start: 200301, end: 201801
  5. RANITIDINE [Suspect]
     Active Substance: RANITIDINE
     Indication: Dyspepsia
     Dosage: 75 MG, AS NEEDED
     Route: 065
     Dates: start: 200301, end: 201801
  6. RANITIDINE [Suspect]
     Active Substance: RANITIDINE
     Dosage: 150 MG, AS NEEDED
     Route: 065
     Dates: start: 200301, end: 201801

REACTIONS (2)
  - Prostate cancer [Unknown]
  - Bone cancer [Unknown]
